FAERS Safety Report 17333405 (Version 1)
Quarter: 2020Q1

REPORT INFORMATION
  Report Type: Spontaneous
  Country: SE (occurrence: SE)
  Receive Date: 20200128
  Receipt Date: 20200128
  Transmission Date: 20200409
  Serious: Yes (Hospitalization)
  Sender: FDA-Public Use
  Company Number: SE-MYLANLABS-2020M1010425

PATIENT
  Age: 29 Year
  Sex: Female

DRUGS (1)
  1. LERGIGAN (PROMETHAZINE HYDROCHLORIDE) [Suspect]
     Active Substance: PROMETHAZINE HYDROCHLORIDE
     Indication: PRODUCT USED FOR UNKNOWN INDICATION
     Dosage: 15 ST
     Route: 048
     Dates: start: 20190709, end: 20190709

REACTIONS (4)
  - Overdose [Unknown]
  - Anxiety [Unknown]
  - Depressed level of consciousness [Unknown]
  - Akathisia [Unknown]

NARRATIVE: CASE EVENT DATE: 20190709
